FAERS Safety Report 13504329 (Version 1)
Quarter: 2017Q2

REPORT INFORMATION
  Report Type: Spontaneous
  Country: IT (occurrence: IT)
  Receive Date: 20170502
  Receipt Date: 20170502
  Transmission Date: 20170830
  Serious: Yes (Other)
  Sender: FDA-Public Use
  Company Number: IT-JNJFOC-20170426271

PATIENT
  Age: 29 Year
  Sex: Male

DRUGS (3)
  1. MORPHINE [Suspect]
     Active Substance: MORPHINE
     Indication: PAIN
     Route: 065
     Dates: start: 20170101, end: 20170101
  2. SERENASE [Concomitant]
     Active Substance: HALOPERIDOL
     Route: 048
  3. DUROGESIC [Suspect]
     Active Substance: FENTANYL
     Indication: PAIN
     Route: 065
     Dates: start: 20170101, end: 20170214

REACTIONS (3)
  - Condition aggravated [Recovering/Resolving]
  - Neurological examination abnormal [Recovering/Resolving]
  - Hallucination [Recovering/Resolving]

NARRATIVE: CASE EVENT DATE: 20170214
